FAERS Safety Report 25872389 (Version 1)
Quarter: 2025Q4

REPORT INFORMATION
  Report Type: Spontaneous
  Country: EG (occurrence: EG)
  Receive Date: 20251002
  Receipt Date: 20251002
  Transmission Date: 20260119
  Serious: Yes (Hospitalization, Other)
  Sender: AMGEN
  Company Number: EG-AMGEN-EGYSP2025192698

PATIENT
  Age: 70 Year
  Sex: Female
  Weight: 70 kg

DRUGS (2)
  1. VECTIBIX [Suspect]
     Active Substance: PANITUMUMAB
     Indication: Colorectal cancer metastatic
     Dosage: 48 MILLIGRAM, Q2WK ( DOSE 3, DAY 1)
     Route: 040
     Dates: end: 2025
  2. OXALIPLATIN [Concomitant]
     Active Substance: OXALIPLATIN
     Dosage: 153 MILLIGRAM, Q2WK (DAY1)

REACTIONS (8)
  - Blood pressure systolic increased [Unknown]
  - Blood pressure diastolic increased [Unknown]
  - Chest pain [Unknown]
  - Chills [Unknown]
  - Vomiting [Unknown]
  - Diarrhoea [Unknown]
  - Oxygen saturation decreased [Unknown]
  - Hypertensive urgency [Unknown]

NARRATIVE: CASE EVENT DATE: 20250814
